FAERS Safety Report 6262233-1 (Version None)
Quarter: 2009Q3

REPORT INFORMATION
  Report Type: 
  Country: None (occurrence: None)
  Receive Date: 20090708
  Receipt Date: 20090708
  Transmission Date: 20100115
  Serious: Yes (Disabling)
  Sender: FDA-Public Use
  Company Number: None

PATIENT
  Age: 60 Year
  Sex: Female
  Weight: 63.5036 kg

DRUGS (1)
  1. ZYCAM NASAL GEL [Suspect]
     Indication: FEELING COLD
     Dosage: USED AS RECCOMENDED NOSE
     Route: 045
     Dates: start: 20000201

REACTIONS (2)
  - AGEUSIA [None]
  - ANOSMIA [None]
